FAERS Safety Report 9258103 (Version 1)
Quarter: 2013Q1

REPORT INFORMATION
  Report Type: Spontaneous
  Country: US (occurrence: None)
  Receive Date: 20121212
  Receipt Date: 20121212
  Transmission Date: 20140127
  Serious: No
  Sender: FDA-Public Use
  Company Number: 1209USA004385

PATIENT
  Age: 60 Year
  Sex: Male
  Weight: 79.8 kg

DRUGS (1)
  1. VICTRELIS  (BOCEPREVIR) [Suspect]
     Dosage: 4 DF, TID, ORAL
     Route: 048
     Dates: start: 20120907

REACTIONS (2)
  - Incorrect storage of drug [None]
  - No adverse event [None]
